FAERS Safety Report 19543877 (Version 1)
Quarter: 2021Q3

REPORT INFORMATION
  Report Type: Spontaneous
  Country: KP (occurrence: KP)
  Receive Date: 20210714
  Receipt Date: 20210714
  Transmission Date: 20211014
  Serious: Yes (Other)
  Sender: FDA-Public Use
  Company Number: KP-SUN PHARMACEUTICAL INDUSTRIES LTD-2021RR-304302

PATIENT
  Age: 55 Year
  Sex: Female

DRUGS (3)
  1. DOCETAXEL. [Suspect]
     Active Substance: DOCETAXEL
     Indication: OROPHARYNGEAL SQUAMOUS CELL CARCINOMA
     Dosage: 1 CYCLE
     Route: 065
  2. PREDNISOLONE. [Suspect]
     Active Substance: PREDNISOLONE
     Indication: OROPHARYNGEAL SQUAMOUS CELL CARCINOMA
     Dosage: 1 MILLIGRAM/KILOGRAM, DAILY
     Route: 048
  3. CISPLATIN. [Suspect]
     Active Substance: CISPLATIN
     Indication: OROPHARYNGEAL SQUAMOUS CELL CARCINOMA
     Dosage: 1 CYCLE
     Route: 065

REACTIONS (4)
  - Oedema [Unknown]
  - Drug ineffective [Unknown]
  - Focal segmental glomerulosclerosis [Recovered/Resolved]
  - Proteinuria [Unknown]
